FAERS Safety Report 5769836-9 (Version None)
Quarter: 2008Q2

REPORT INFORMATION
  Report Type: 
  Country: None (occurrence: None)
  Receive Date: 20080613
  Receipt Date: 20080409
  Transmission Date: 20081010
  Serious: No
  Sender: FDA-Public Use
  Company Number: US-ABBOTT-08P-163-0446605-00

PATIENT
  Sex: Female
  Weight: 65.83 kg

DRUGS (5)
  1. HUMIRA [Suspect]
     Indication: RHEUMATOID ARTHRITIS
     Dosage: PEN
     Route: 058
     Dates: start: 20080301
  2. HUMIRA [Suspect]
     Dosage: PFS
     Route: 058
     Dates: start: 20010101, end: 20080301
  3. METHOTREXATE [Concomitant]
     Indication: RHEUMATOID ARTHRITIS
     Dates: start: 20010101
  4. FOLIC ACID [Concomitant]
     Indication: VITAMIN SUPPLEMENTATION
  5. HYDROCHLOROQUINE [Concomitant]
     Indication: INFLAMMATION

REACTIONS (3)
  - BREAST PAIN [None]
  - FLATULENCE [None]
  - HEADACHE [None]
